FAERS Safety Report 21890887 (Version 1)
Quarter: 2023Q1

REPORT INFORMATION
  Report Type: Spontaneous
  Country: US (occurrence: None)
  Receive Date: 20230119
  Receipt Date: 20230119
  Transmission Date: 20230417
  Serious: Yes (Other)
  Sender: FDA-Public Use
  Company Number: None

PATIENT
  Age: 69 Week
  Sex: Female
  Weight: 83.01 kg

DRUGS (2)
  1. WAKIX [Suspect]
     Active Substance: PITOLISANT HYDROCHLORIDE
     Indication: Narcolepsy
     Dosage: OTHER FREQUENCY : IN THE MORNING;?
     Route: 048
     Dates: end: 20230119
  2. WAKIX [Suspect]
     Active Substance: PITOLISANT HYDROCHLORIDE
     Indication: Cataplexy

REACTIONS (6)
  - Poor quality sleep [None]
  - Anxiety [None]
  - Nausea [None]
  - Inability to afford medication [None]
  - Withdrawal syndrome [None]
  - Quality of life decreased [None]

NARRATIVE: CASE EVENT DATE: 20221121
